FAERS Safety Report 8544974 (Version 2)
Quarter: 2013Q2

REPORT INFORMATION
  Report Type: Spontaneous
  Country: US (occurrence: None)
  Receive Date: 20120315
  Receipt Date: 20130107
  Transmission Date: 20140414
  Serious: Yes (Other)
  Sender: FDA-Public Use
  Company Number: PHHY2011US49698

PATIENT
  Age: 46 Year
  Sex: Female
  Weight: 112.9 kg

DRUGS (1)
  1. GILENYA [Suspect]
     Indication: MULTIPLE SCLEROSIS
     Dosage: 0.5 MG, QD, ORAL
     Route: 048
     Dates: start: 20110502

REACTIONS (3)
  - MIGRAINE [None]
  - CARDIAC ENZYMES INCREASED [None]
  - ARTHRALGIA [None]
